FAERS Safety Report 8244109-3 (Version None)
Quarter: 2012Q1

REPORT INFORMATION
  Report Type: 
  Country: None (occurrence: None)
  Receive Date: 20120329
  Receipt Date: 20120322
  Transmission Date: 20120608
  Serious: Yes (Hospitalization, Other)
  Sender: FDA-Public Use
  Company Number: US-ABBOTT-12P-163-0918059-00

PATIENT
  Age: 60 Year
  Sex: Female

DRUGS (18)
  1. NOVOLIN R [Concomitant]
     Indication: DIABETES MELLITUS
  2. LIDODERM [Concomitant]
     Indication: BACK PAIN
  3. BUPROPION HCL [Concomitant]
     Indication: DEPRESSION
     Dosage: DAILY
  4. TIZANIDINE HCL [Concomitant]
     Indication: MUSCLE RELAXANT THERAPY
  5. ALLERGY [Concomitant]
     Indication: PRODUCT USED FOR UNKNOWN INDICATION
     Dosage: OVER THE COUNTER PILL DAILY
  6. HUMIRA [Suspect]
     Indication: PSORIASIS
     Dates: start: 20100301
  7. LIDODERM [Concomitant]
     Indication: ARTHRALGIA
     Dosage: PATCH
  8. LIPITOR [Concomitant]
     Indication: BLOOD CHOLESTEROL INCREASED
     Dosage: DAILY
  9. LYRICA [Concomitant]
     Indication: ANXIOLYTIC THERAPY
  10. VITAMIN B-12 [Concomitant]
     Indication: PRODUCT USED FOR UNKNOWN INDICATION
     Dosage: DAILY
  11. GEMFIBROZIL [Concomitant]
     Indication: BLOOD CHOLESTEROL INCREASED
  12. HYDROCODONE BITARTRATE [Concomitant]
     Indication: PAIN
     Dosage: 10/325MG, EVERY 4 HOURS
  13. FAMOTIDINE [Concomitant]
     Indication: GASTROOESOPHAGEAL REFLUX DISEASE
  14. ABILIFY [Concomitant]
     Indication: DEPRESSION
     Dosage: DAILY
  15. NEXIUM [Concomitant]
     Indication: GASTROOESOPHAGEAL REFLUX DISEASE
  16. CYMBALTA [Concomitant]
     Indication: DEPRESSION
     Dosage: DAILY
  17. JANUVIA [Concomitant]
     Indication: DIABETES MELLITUS
     Dosage: DAILY
  18. LANTUS [Concomitant]
     Indication: DIABETES MELLITUS

REACTIONS (5)
  - JOINT INJURY [None]
  - FEELING ABNORMAL [None]
  - FALL [None]
  - PSORIASIS [None]
  - FOOD POISONING [None]
